FAERS Safety Report 7073814-X (Version None)
Quarter: 2010Q4

REPORT INFORMATION
  Report Type: 
  Country: None (occurrence: None)
  Receive Date: 20101029
  Receipt Date: 20101011
  Transmission Date: 20110411
  Serious: Yes (Other)
  Sender: FDA-Public Use
  Company Number: A0876536A

PATIENT
  Age: 53 Year
  Sex: Female

DRUGS (2)
  1. ADVAIR DISKUS 100/50 [Suspect]
     Indication: ASTHMA
     Dosage: 1PUFF TWICE PER DAY
     Route: 055
  2. ALBUTEROL [Concomitant]
     Route: 055

REACTIONS (4)
  - ASTHMA [None]
  - DRUG INEFFECTIVE [None]
  - INHALATION THERAPY [None]
  - PRODUCT QUALITY ISSUE [None]
